FAERS Safety Report 20036773 (Version 1)
Quarter: 2021Q4

REPORT INFORMATION
  Report Type: Spontaneous
  Country: GB (occurrence: GB)
  Receive Date: 20211105
  Receipt Date: 20211105
  Transmission Date: 20220303
  Serious: Yes (Other)
  Sender: FDA-Public Use
  Company Number: None

PATIENT
  Age: 86 Year
  Sex: Male
  Weight: 74 kg

DRUGS (8)
  1. DICLOFENAC SODIUM [Suspect]
     Active Substance: DICLOFENAC SODIUM
     Indication: Product used for unknown indication
     Dosage: 3 %,
     Dates: start: 20211102
  2. SOLARAZE [Suspect]
     Active Substance: DICLOFENAC SODIUM
     Indication: Product used for unknown indication
     Dosage: UNK
     Dates: start: 20210812, end: 20210909
  3. ALLOPURINOL [Concomitant]
     Active Substance: ALLOPURINOL
     Indication: Product used for unknown indication
     Dosage: 1 DF, QD AFTER FOOD
     Dates: start: 20201103
  4. ATORVASTATIN [Concomitant]
     Active Substance: ATORVASTATIN
     Indication: Product used for unknown indication
     Dosage: 1 DF,QD
     Dates: start: 20201103
  5. BISOPROLOL [Concomitant]
     Active Substance: BISOPROLOL
     Indication: Product used for unknown indication
     Dosage: 1 DF, QD
     Dates: start: 20210527
  6. DERMOL (BENZALKONIUM CHLORIDE + CHLORHEXIDINE HCL + LIQUID PARAFFIN + [Concomitant]
     Indication: Product used for unknown indication
     Dosage: APPLY TO SKIN OR USE AS A SOAP SUBSTITUTE
     Dates: start: 20211021
  7. FUCIDIN [Concomitant]
     Active Substance: FUSIDATE SODIUM
     Indication: Product used for unknown indication
     Dosage: 1 DF, BID APPLY
     Dates: start: 20211020, end: 20211027
  8. RIVAROXABAN [Concomitant]
     Active Substance: RIVAROXABAN
     Indication: Product used for unknown indication
     Dosage: 1 DF, QF
     Dates: start: 20201103

REACTIONS (1)
  - Dermatitis contact [Recovered/Resolved]
